FAERS Safety Report 9029414 (Version 1)
Quarter: 2013Q1

REPORT INFORMATION
  Report Type: Spontaneous
  Country: US (occurrence: US)
  Receive Date: 20130125
  Receipt Date: 20130125
  Transmission Date: 20140127
  Serious: Yes (Other)
  Sender: FDA-Public Use
  Company Number: US-SANOFI-AVENTIS-2013SA004872

PATIENT
  Sex: Male

DRUGS (9)
  1. PLAVIX [Suspect]
  2. ALLEGRA [Suspect]
  3. CRESTOR /UNK/ [Concomitant]
  4. RAMIPRIL [Concomitant]
  5. BISOPROLOL [Concomitant]
  6. ASPIRIN [Concomitant]
  7. TETRACYCLINE [Concomitant]
  8. ADVAIR [Concomitant]
  9. UNIPHYL [Concomitant]

REACTIONS (7)
  - Influenza [Unknown]
  - Nasopharyngitis [Unknown]
  - Rhinorrhoea [Unknown]
  - Pyrexia [Unknown]
  - Cough [Unknown]
  - Pruritus [Unknown]
  - Throat irritation [Unknown]
